FAERS Safety Report 7868834-9 (Version None)
Quarter: 2011Q4

REPORT INFORMATION
  Report Type: 
  Country: None (occurrence: None)
  Receive Date: 20111025
  Receipt Date: 20110811
  Transmission Date: 20120403
  Serious: Yes (Other)
  Sender: FDA-Public Use
  Company Number: 2011SP038701

PATIENT
  Age: 41 Year
  Sex: Female

DRUGS (10)
  1. RIBAVIRIN [Suspect]
     Indication: HEPATITIS C
     Dates: start: 20110715
  2. NEURONTIN [Concomitant]
  3. KLONOPIN [Concomitant]
  4. CLONIDINE [Concomitant]
  5. BENADRYL [Concomitant]
  6. SENNA [Concomitant]
  7. PAXIL [Concomitant]
  8. PEG-INTRON [Suspect]
     Indication: HEPATITIS C
     Dates: start: 20110715
  9. IBUPROFEN [Concomitant]
  10. LEVOTHYROXINE SODIUM [Concomitant]

REACTIONS (8)
  - FALL [None]
  - COUGH [None]
  - PRURITUS [None]
  - AGGRESSION [None]
  - WEIGHT DECREASED [None]
  - INCREASED UPPER AIRWAY SECRETION [None]
  - MOOD SWINGS [None]
  - POLLAKIURIA [None]
